FAERS Safety Report 9855812 (Version 1)
Quarter: 2014Q1

REPORT INFORMATION
  Report Type: Spontaneous
  Country: IT (occurrence: IT)
  Receive Date: 20140130
  Receipt Date: 20140130
  Transmission Date: 20141002
  Serious: Yes (Hospitalization)
  Sender: FDA-Public Use
  Company Number: IT-MYLANLABS-2014S1001205

PATIENT
  Age: 55 Year
  Sex: Male

DRUGS (3)
  1. SERTRALINE [Suspect]
     Indication: DEPRESSION
     Dosage: 250 MG TOTAL
     Route: 048
     Dates: start: 20140110, end: 20140110
  2. SERTRALINE [Suspect]
     Indication: DEPRESSION
  3. RIVOTRIL [Suspect]
     Indication: DEPRESSION
     Dosage: 10 DF TOTAL
     Route: 048
     Dates: start: 20140110, end: 20140110

REACTIONS (5)
  - Intentional overdose [Recovering/Resolving]
  - Drug abuse [Recovering/Resolving]
  - Intentional self-injury [Recovering/Resolving]
  - Bradykinesia [Recovering/Resolving]
  - Bradyphrenia [Recovering/Resolving]
